FAERS Safety Report 16856115 (Version 1)
Quarter: 2019Q3

REPORT INFORMATION
  Report Type: Spontaneous
  Country: FR (occurrence: FR)
  Receive Date: 20190926
  Receipt Date: 20190926
  Transmission Date: 20191005
  Serious: Yes (Hospitalization)
  Sender: FDA-Public Use
  Company Number: FR-MYLANLABS-2019M1089060

PATIENT
  Age: 87 Year
  Sex: Male
  Weight: 65 kg

DRUGS (3)
  1. PAROXETINE. [Suspect]
     Active Substance: PAROXETINE
     Indication: MAJOR DEPRESSION
     Dosage: 20 MILLIGRAM, QD
     Route: 048
  2. NEBIVOLOL. [Suspect]
     Active Substance: NEBIVOLOL
     Indication: HYPERTENSION
     Dosage: 2.5 MILLIGRAM, QD
     Route: 048
     Dates: end: 20180226
  3. TRAMADOL. [Suspect]
     Active Substance: TRAMADOL
     Indication: PRODUCT USED FOR UNKNOWN INDICATION
     Dosage: 300 MILLIGRAM, QD
     Route: 048

REACTIONS (2)
  - Fall [Recovering/Resolving]
  - Orthostatic hypotension [Recovering/Resolving]

NARRATIVE: CASE EVENT DATE: 201802
